FAERS Safety Report 25606753 (Version 1)
Quarter: 2025Q3

REPORT INFORMATION
  Report Type: Spontaneous
  Country: EU (occurrence: EU)
  Receive Date: 20250725
  Receipt Date: 20250725
  Transmission Date: 20251020
  Serious: Yes (Death)
  Sender: AMGEN
  Company Number: EU-AMGEN-DEUSP2025142302

PATIENT

DRUGS (10)
  1. PREDNISONE [Suspect]
     Active Substance: PREDNISONE
     Indication: B-cell lymphoma recurrent
     Route: 065
  2. PREDNISONE [Suspect]
     Active Substance: PREDNISONE
     Indication: B-cell lymphoma refractory
  3. VENETOCLAX [Concomitant]
     Active Substance: VENETOCLAX
     Indication: B-cell lymphoma recurrent
  4. VENETOCLAX [Concomitant]
     Active Substance: VENETOCLAX
     Indication: B-cell lymphoma refractory
  5. IBRUTINIB [Concomitant]
     Active Substance: IBRUTINIB
     Indication: B-cell lymphoma recurrent
  6. IBRUTINIB [Concomitant]
     Active Substance: IBRUTINIB
     Indication: B-cell lymphoma refractory
  7. OBINUTUZUMAB [Concomitant]
     Active Substance: OBINUTUZUMAB
     Indication: B-cell lymphoma recurrent
  8. OBINUTUZUMAB [Concomitant]
     Active Substance: OBINUTUZUMAB
     Indication: B-cell lymphoma refractory
  9. LENALIDOMIDE [Concomitant]
     Active Substance: LENALIDOMIDE
     Indication: B-cell lymphoma recurrent
  10. LENALIDOMIDE [Concomitant]
     Active Substance: LENALIDOMIDE
     Indication: B-cell lymphoma refractory

REACTIONS (1)
  - Death [Fatal]
